FAERS Safety Report 20173531 (Version 1)
Quarter: 2021Q4

REPORT INFORMATION
  Report Type: Spontaneous
  Country: RS (occurrence: RS)
  Receive Date: 20211212
  Receipt Date: 20211212
  Transmission Date: 20220304
  Serious: Yes (Hospitalization, Disabling)
  Sender: FDA-Public Use
  Company Number: RS-009507513-2112SRB002935

PATIENT
  Age: 73 Year
  Sex: Female

DRUGS (2)
  1. KEYTRUDA [Suspect]
     Active Substance: PEMBROLIZUMAB
     Indication: Malignant melanoma
     Dosage: 100 MILLIGRAM, INTRAVENOUS DRIP
     Route: 041
     Dates: start: 202101, end: 202106
  2. EUTHYROX [Concomitant]
     Active Substance: LEVOTHYROXINE SODIUM
     Indication: Hypothyroidism
     Dosage: UNK
     Route: 048

REACTIONS (5)
  - Thyroiditis [Not Recovered/Not Resolved]
  - Hypothyroidism [Not Recovered/Not Resolved]
  - Erythema [Recovering/Resolving]
  - Skin hypertrophy [Recovering/Resolving]
  - Scleroderma [Recovering/Resolving]

NARRATIVE: CASE EVENT DATE: 20210601
